FAERS Safety Report 5366687-4 (Version None)
Quarter: 2007Q2

REPORT INFORMATION
  Report Type: 
  Country: None (occurrence: None)
  Receive Date: 20070622
  Receipt Date: 20060509
  Transmission Date: 20071010
  Serious: No
  Sender: FDA-Public Use
  Company Number: US-ASTRAZENECA-2006UW09108

PATIENT
  Age: 66 Year
  Sex: Male
  Weight: 108.9 kg

DRUGS (2)
  1. RHINOCORT [Suspect]
     Indication: SINUSITIS
     Dosage: 120 METER SPRAY UNIT
     Route: 045
  2. BLOOD PRESSURE MEDICATION [Concomitant]

REACTIONS (1)
  - NIPPLE PAIN [None]
